FAERS Safety Report 9403338 (Version 2)
Quarter: 2013Q3

REPORT INFORMATION
  Report Type: Report from Study
  Country: US (occurrence: US)
  Receive Date: 20130716
  Receipt Date: 20130829
  Transmission Date: 20140515
  Serious: Yes (Hospitalization)
  Sender: FDA-Public Use
  Company Number: US-US-EMD SERONO, INC.-7223412

PATIENT
  Age: 40 Year
  Sex: Female
  Weight: 79 kg

DRUGS (3)
  1. REBIF [Suspect]
     Indication: MULTIPLE SCLEROSIS
     Dates: start: 20070522, end: 20090526
  2. REBIF [Suspect]
     Dates: start: 20090617, end: 20120605
  3. REBIF [Suspect]
     Route: 058
     Dates: start: 20130507

REACTIONS (2)
  - Fall [Unknown]
  - Convulsion [Recovered/Resolved]
